FAERS Safety Report 5121294-3 (Version None)
Quarter: 2006Q4

REPORT INFORMATION
  Report Type: 
  Country: None (occurrence: None)
  Receive Date: 20061002
  Receipt Date: 20060917
  Transmission Date: 20070319
  Serious: Yes (Hospitalization, Other)
  Sender: FDA-Public Use
  Company Number: 2006111339

PATIENT
  Age: 40 Year
  Sex: Female

DRUGS (3)
  1. GEODON [Suspect]
     Dosage: 160 MG (80 MG, 2 IN 1 D)
     Dates: start: 20060124, end: 20060101
  2. LITHIUM CARBONATE [Concomitant]
  3. LEXAPRO [Concomitant]

REACTIONS (1)
  - STEVENS-JOHNSON SYNDROME [None]
